FAERS Safety Report 10761408 (Version 1)
Quarter: 2015Q1

REPORT INFORMATION
  Report Type: Spontaneous
  Country: US (occurrence: None)
  Receive Date: 20150203
  Receipt Date: 20150203
  Transmission Date: 20150721
  Serious: Yes (Hospitalization)
  Sender: FDA-Public Use
  Company Number: None

PATIENT
  Age: 67 Year
  Sex: Male
  Weight: 88.9 kg

DRUGS (3)
  1. DILTIAZEM [Concomitant]
     Active Substance: DILTIAZEM
  2. TADALAFIL [Suspect]
     Active Substance: TADALAFIL
     Indication: PLASMA CELL MYELOMA
     Route: 048
     Dates: start: 20150125, end: 20150126
  3. ACTIVATED MARROW INFILTRATING LYMPHOCYTES [Suspect]
     Active Substance: LYMPHOCYTES
     Indication: PLASMA CELL MYELOMA
     Dosage: SINGLE IV INFUSION
     Route: 042
     Dates: start: 20150126

REACTIONS (2)
  - Atrial fibrillation [None]
  - Hypotension [None]

NARRATIVE: CASE EVENT DATE: 20150127
